FAERS Safety Report 18635579 (Version 1)
Quarter: 2020Q4

REPORT INFORMATION
  Report Type: Report from Study
  Country: US (occurrence: US)
  Receive Date: 20201218
  Receipt Date: 20201218
  Transmission Date: 20210114
  Serious: Yes (Other)
  Sender: FDA-Public Use
  Company Number: US-REGENERON PHARMACEUTICALS, INC.-2020-24312

PATIENT

DRUGS (4)
  1. EYLEA [Suspect]
     Active Substance: AFLIBERCEPT
     Dosage: 2 MG, VARIED BETWEEN 1 MONTH AND SOMETIMES 4-5 MONTHS, RIGHT EYE
     Route: 031
     Dates: start: 20191112, end: 20191112
  2. LUCENTIS [Concomitant]
     Active Substance: RANIBIZUMAB
     Indication: DIABETIC RETINOPATHY
     Dosage: 0.3 MG, BOTH EYES
     Route: 031
     Dates: start: 201808
  3. LUCENTIS [Concomitant]
     Active Substance: RANIBIZUMAB
     Dosage: 0.3 MG, LEFT EYE
     Route: 031
  4. EYLEA [Suspect]
     Active Substance: AFLIBERCEPT
     Indication: DIABETIC RETINOPATHY
     Dosage: 2 MG, VARIED BETWEEN 1 MONTH AND SOMETIMES 4-5 MONTHS, RIGHT EYE
     Route: 031
     Dates: start: 20181130

REACTIONS (5)
  - Retinal detachment [Unknown]
  - Photopsia [Unknown]
  - Eye haemorrhage [Unknown]
  - Visual impairment [Unknown]
  - Product dose omission issue [Unknown]

NARRATIVE: CASE EVENT DATE: 20191127
